FAERS Safety Report 7619251-8 (Version None)
Quarter: 2011Q3

REPORT INFORMATION
  Report Type: 
  Country: None (occurrence: None)
  Receive Date: 20110718
  Receipt Date: 20110708
  Transmission Date: 20111222
  Serious: Yes (Hospitalization)
  Sender: FDA-Public Use
  Company Number: US-ASTRAZENECA-2011SE15562

PATIENT
  Age: 80 Year
  Sex: Female
  Weight: 74.8 kg

DRUGS (12)
  1. MIRALAX [Concomitant]
     Indication: CONSTIPATION
     Dosage: 17 G IN 8 OUNCES OF WATER
     Route: 048
  2. FUROSEMIDE [Concomitant]
  3. ALBUTEROL SULFATE AUTOHALER [Concomitant]
     Indication: WHEEZING
  4. MULTAQ [Concomitant]
  5. TRAMADOL HCL [Concomitant]
     Indication: PAIN
  6. WARFARIN SODIUM [Concomitant]
  7. POTASSIUM CHLORIDE [Concomitant]
     Route: 048
  8. SIMVASTATIN [Concomitant]
  9. PRN SOAP SUDS ENEMA [Concomitant]
  10. ARIMIDEX [Suspect]
     Indication: BREAST CANCER
     Route: 048
  11. LACTULOSE [Concomitant]
  12. SPIRONOLACTONE [Concomitant]

REACTIONS (15)
  - GENERALISED OEDEMA [None]
  - DYSPNOEA [None]
  - FALL [None]
  - BEDRIDDEN [None]
  - REHABILITATION THERAPY [None]
  - RIGHT VENTRICULAR FAILURE [None]
  - ADVERSE EVENT [None]
  - RENAL FAILURE ACUTE [None]
  - ATRIAL FIBRILLATION [None]
  - MOBILITY DECREASED [None]
  - PLEURAL EFFUSION [None]
  - OBSTRUCTIVE AIRWAYS DISORDER [None]
  - BRAIN NATRIURETIC PEPTIDE INCREASED [None]
  - CENTRAL VENOUS CATHETERISATION [None]
  - CONSTIPATION [None]
